FAERS Safety Report 7498533-7 (Version None)
Quarter: 2011Q2

REPORT INFORMATION
  Report Type: 
  Country: None (occurrence: None)
  Receive Date: 20110516
  Receipt Date: 20110503
  Transmission Date: 20111010
  Serious: Yes (Other)
  Sender: FDA-Public Use
  Company Number: CA-2011-1052

PATIENT
  Age: 63 Year
  Sex: Male

DRUGS (5)
  1. ZOFRAN [Concomitant]
  2. CISPLATIN [Suspect]
     Indication: NON-SMALL CELL LUNG CANCER
     Dosage: 160 MG, IV
     Route: 042
     Dates: start: 20101217, end: 20110401
  3. VINORELBINE [Suspect]
     Indication: NON-SMALL CELL LUNG CANCER
     Dosage: 50 MG, IV
     Route: 042
     Dates: start: 20101217, end: 20110408
  4. DEXAMETHASONE SODIUM PHOSPHATE [Concomitant]
  5. CETUXIMAB [Suspect]
     Indication: NON-SMALL CELL LUNG CANCER
     Dosage: 500 MG, IV
     Route: 042
     Dates: start: 20101217

REACTIONS (1)
  - PULMONARY EMBOLISM [None]
